FAERS Safety Report 4618899-2 (Version None)
Quarter: 2005Q1

REPORT INFORMATION
  Report Type: 
  Country: None (occurrence: None)
  Receive Date: 20050323
  Receipt Date: 20050310
  Transmission Date: 20050727
  Serious: Yes (Other)
  Sender: FDA-Public Use
  Company Number: 2005047035

PATIENT
  Age: 67 Year
  Sex: Female
  Weight: 63.5036 kg

DRUGS (6)
  1. DETROL LA CAPSULE, PROLONGED RELEASE (TOLETERODINE L-TARTRATE) [Suspect]
     Indication: POLLAKIURIA
     Dosage: 4 MG (4 MG DAILY), ORAL
     Route: 048
  2. VITAMINS (VITAMINS) [Concomitant]
  3. BIOTIN [Concomitant]
  4. CHROMIUN PICOLINATE (CHROMIUN PICOLINATE) [Concomitant]
  5. CALCIUM FERROUS CITRATE (CALCIUM FERROUS CITRATE) [Concomitant]
  6. SENNA FRUIT (SENNA FRUIT) [Concomitant]

REACTIONS (5)
  - BLOOD CHOLESTEROL INCREASED [None]
  - HYPERTENSION [None]
  - IRRITABLE BOWEL SYNDROME [None]
  - ULCER [None]
  - URINARY TRACT INFECTION [None]
